FAERS Safety Report 6108677-X (Version None)
Quarter: 2009Q1

REPORT INFORMATION
  Report Type: 
  Country: None (occurrence: None)
  Receive Date: 20090305
  Receipt Date: 20090220
  Transmission Date: 20090719
  Serious: Yes (Life-Threatening, Hospitalization)
  Sender: FDA-Public Use
  Company Number: 2009000490

PATIENT
  Age: 70 Year
  Sex: Female

DRUGS (5)
  1. ERLOTINIB / PLACEBO (ERLOTINIB HCL) (TABLET) (ERLOTINIB HCL) [Suspect]
     Indication: PANCREATIC CARCINOMA
     Dosage: (MG), ORAL
     Route: 048
     Dates: start: 20090119, end: 20090202
  2. FENTANYL-100 [Concomitant]
  3. TRAMADOL HCL [Concomitant]
  4. IBUPROFEN [Concomitant]
  5. AMITRIPTYLINE HYDROCHLORIDE [Concomitant]

REACTIONS (7)
  - ASTHENIA [None]
  - GASTROINTESTINAL HAEMORRHAGE [None]
  - HAEMORRHAGIC ANAEMIA [None]
  - INTERNATIONAL NORMALISED RATIO INCREASED [None]
  - MALIGNANT NEOPLASM PROGRESSION [None]
  - PANCREATIC CARCINOMA [None]
  - PROTHROMBIN TIME PROLONGED [None]
